FAERS Safety Report 4993089-2 (Version None)
Quarter: 2006Q1

REPORT INFORMATION
  Report Type: 
  Country: None (occurrence: None)
  Receive Date: 20060313
  Receipt Date: 20051219
  Transmission Date: 20060701
  Serious: No
  Sender: FDA-Public Use
  Company Number: 2005-BP-21573BP

PATIENT
  Age: 59 Year
  Sex: Female

DRUGS (5)
  1. SPIRIVA [Suspect]
     Indication: ASTHMA
     Dosage: 18 MCG(18 MCG),IH
     Dates: start: 20051015
  2. ATENOLOL [Concomitant]
  3. IMIPRAMINE [Concomitant]
  4. ADVAIR (SERETIDE) [Concomitant]
  5. SINGULAIR [Concomitant]

REACTIONS (1)
  - VAGINAL HAEMORRHAGE [None]
